FAERS Safety Report 6553110-7 (Version None)
Quarter: 2010Q1

REPORT INFORMATION
  Report Type: 
  Country: None (occurrence: None)
  Receive Date: 20100127
  Receipt Date: 20090206
  Transmission Date: 20100710
  Serious: No
  Sender: FDA-Public Use
  Company Number: A0764595A

PATIENT
  Age: 26 Year
  Sex: Male
  Weight: 79.5 kg

DRUGS (1)
  1. SUMATRIPTAN SUCCINATE [Suspect]
     Indication: DRUG USE FOR UNKNOWN INDICATION
     Route: 042
     Dates: start: 20071001

REACTIONS (2)
  - DRUG ADMINISTRATION ERROR [None]
  - PRODUCT QUALITY ISSUE [None]
